FAERS Safety Report 6767425-0 (Version None)
Quarter: 2010Q2

REPORT INFORMATION
  Report Type: 
  Country: None (occurrence: None)
  Receive Date: 20100611
  Receipt Date: 20100611
  Transmission Date: 20101027
  Serious: Yes (Hospitalization, Disabling, Other)
  Sender: FDA-Public Use
  Company Number: None

PATIENT
  Age: 3 Year
  Sex: Female
  Weight: 12.2471 kg

DRUGS (1)
  1. LEVETIRACETAM [Suspect]
     Indication: CONVULSION
     Dosage: 3.5 ML EVERY 12 HOURS PO
     Route: 048
     Dates: start: 20090401, end: 20090531

REACTIONS (5)
  - CONVULSION [None]
  - DEVELOPMENTAL DELAY [None]
  - DRUG LEVEL DECREASED [None]
  - DYSPNOEA [None]
  - PRODUCT SUBSTITUTION ISSUE [None]
